FAERS Safety Report 8509778-9 (Version None)
Quarter: 2012Q3

REPORT INFORMATION
  Report Type: 
  Country: None (occurrence: None)
  Receive Date: 20120713
  Receipt Date: 20120703
  Transmission Date: 20120928
  Serious: No
  Sender: FDA-Public Use
  Company Number: US-ASTRAZENECA-2012SE45654

PATIENT
  Age: 60 Year
  Sex: Female

DRUGS (1)
  1. SYMBICORT [Suspect]
     Route: 055

REACTIONS (4)
  - SWOLLEN TONGUE [None]
  - HYPERSENSITIVITY [None]
  - HEART RATE INCREASED [None]
  - LIP SWELLING [None]
